FAERS Safety Report 5293796-0 (Version None)
Quarter: 2007Q2

REPORT INFORMATION
  Report Type: 
  Country: None (occurrence: None)
  Receive Date: 20070405
  Receipt Date: 20070320
  Transmission Date: 20071010
  Serious: Yes (Hospitalization)
  Sender: FDA-Public Use
  Company Number: 2006BI014428

PATIENT
  Age: 56 Year
  Sex: Female

DRUGS (13)
  1. AVONEX [Suspect]
     Indication: MULTIPLE SCLEROSIS
     Dosage: 30 UG; QW; IM
     Route: 030
     Dates: start: 20030601, end: 20030901
  2. AVONEX [Suspect]
     Indication: MULTIPLE SCLEROSIS
     Dosage: 30 UG; QW; IM
     Route: 030
     Dates: start: 20030901, end: 20060712
  3. ATENOLOL [Concomitant]
  4. ZANTAC [Concomitant]
  5. NAPROXEN [Concomitant]
  6. MOTILIUM [Concomitant]
  7. COLOFAC [Concomitant]
  8. DETRUNORM [Concomitant]
  9. MALOX [Concomitant]
  10. TRISEQUIENS [Concomitant]
  11. NITROFUANTOIN [Concomitant]
  12. HORMONE REPLACEMENT THERAPY [Concomitant]
  13. AMANTADINE HCL [Concomitant]

REACTIONS (6)
  - ECZEMA [None]
  - INTERSTITIAL LUNG DISEASE [None]
  - NASAL CONGESTION [None]
  - PULMONARY FIBROSIS [None]
  - RHINITIS [None]
  - SNEEZING [None]
